FAERS Safety Report 26135629 (Version 1)
Quarter: 2025Q4

REPORT INFORMATION
  Report Type: Spontaneous
  Country: RU (occurrence: RU)
  Receive Date: 20251209
  Receipt Date: 20251209
  Transmission Date: 20260119
  Serious: Yes (Death)
  Sender: SEPTODONT
  Company Number: None

PATIENT
  Age: 31 Year
  Sex: Male
  Weight: 85 kg

DRUGS (5)
  1. ARTICAINE HYDROCHLORIDE\EPINEPHRINE HYDROCHLORIDE [Suspect]
     Active Substance: ARTICAINE HYDROCHLORIDE\EPINEPHRINE HYDROCHLORIDE
     Indication: Local anaesthesia
     Dosage: NUMBER OF INJECTIONS: 2.
     Route: 023
     Dates: start: 20251128
  2. LIDOCAINE [Suspect]
     Active Substance: LIDOCAINE
     Dosage: 360MG
     Route: 023
  3. SODIUM CHLORIDE [Suspect]
     Active Substance: SODIUM CHLORIDE
     Dosage: INFUSION SOLUTION.
     Route: 023
  4. DEXAMETHASONE [Suspect]
     Active Substance: DEXAMETHASONE
     Route: 030
  5. BETADINE [Suspect]
     Active Substance: POVIDONE-IODINE

REACTIONS (10)
  - Dyspnoea [Fatal]
  - Hypoaesthesia [Fatal]
  - Hypoaesthesia oral [Fatal]
  - Dysarthria [Fatal]
  - Hypertension [Fatal]
  - Loss of consciousness [Fatal]
  - Cyanosis [Fatal]
  - Miosis [Fatal]
  - Dizziness [Fatal]
  - Off label use [Unknown]

NARRATIVE: CASE EVENT DATE: 20251128
